FAERS Safety Report 9923156 (Version 1)
Quarter: 2014Q1

REPORT INFORMATION
  Report Type: Spontaneous
  Country: US (occurrence: US)
  Receive Date: 20140225
  Receipt Date: 20140225
  Transmission Date: 20141002
  Serious: No
  Sender: FDA-Public Use
  Company Number: US-AMGEN-USASP2013070521

PATIENT
  Age: 41 Year
  Sex: Female

DRUGS (11)
  1. ENBREL [Suspect]
     Indication: PRODUCT USED FOR UNKNOWN INDICATION
     Dosage: 50 MG, EVERY SEVEN DAYS
     Route: 058
  2. METOPROLOL [Concomitant]
     Dosage: 100 MG, UNK
  3. CYCLOBENZAPRINE [Concomitant]
     Dosage: 30 MG, UNK
  4. HYDROCODONE W/APAP                 /01554201/ [Concomitant]
     Dosage: 5-300 MG, UNK
  5. NEXIUM                             /01479302/ [Concomitant]
     Dosage: 40 MG, UNK
  6. ALBUTEROL                          /00139501/ [Concomitant]
     Dosage: 90 MUG, UNK
  7. QVAR [Concomitant]
     Dosage: 40 MUG, UNK
  8. NAPROXEN [Concomitant]
     Dosage: 250 MG, UNK
  9. PAROXETINE [Concomitant]
     Dosage: 40 MG, UNK
  10. BIOTIN [Concomitant]
     Dosage: 5000 UNK, UNK
  11. OMEGA 3                            /01333901/ [Concomitant]
     Dosage: 1200 MG, UNK

REACTIONS (3)
  - Alopecia [Unknown]
  - Pain [Unknown]
  - Oral herpes [Unknown]
